FAERS Safety Report 5301503-8 (Version None)
Quarter: 2007Q2

REPORT INFORMATION
  Report Type: 
  Country: None (occurrence: None)
  Receive Date: 20070412
  Receipt Date: 20070404
  Transmission Date: 20071010
  Serious: Yes (Hospitalization, Other)
  Sender: FDA-Public Use
  Company Number: 232319K07USA

PATIENT
  Age: 53 Year
  Sex: Male

DRUGS (7)
  1. REBIF [Suspect]
     Indication: MULTIPLE SCLEROSIS
     Dosage: 44 MCG, 3 IN 1 WEEKS, SUBCUTANEOUS
     Route: 058
     Dates: start: 20050616
  2. 4-AMINOPYRIDINE (FAMPRIDINE) [Suspect]
     Dates: start: 20061201, end: 20070202
  3. IBUPROFEN [Concomitant]
  4. FLUOXETINE (FLUOXETINE/00724401/) [Concomitant]
  5. ASPIRIN [Concomitant]
  6. CLONAZEPAM [Concomitant]
  7. LIPITOR [Concomitant]

REACTIONS (4)
  - BLOOD GLUCOSE DECREASED [None]
  - CONVULSION [None]
  - FALL [None]
  - HEAD INJURY [None]
